FAERS Safety Report 8716067 (Version 2)
Quarter: 2012Q4

REPORT INFORMATION
  Report Type: 
  Country: US (occurrence: US)
  Receive Date: 20120809
  Receipt Date: 20121005
  Transmission Date: 20130627
  Serious: Yes (Other)
  Sender: FDA-Public Use
  Company Number: CHPA2012US016931

PATIENT
  Age: 80 Year
  Sex: Female
  Weight: 133 kg

DRUGS (12)
  1. EXCEDRIN TENSION HEADACHE [Suspect]
     Indication: HEADACHE
     Dosage: 4 to 6 DF, QD
     Route: 048
     Dates: end: 201201
  2. FIORICET [Concomitant]
     Indication: HEADACHE
  3. ALBUTEROL [Concomitant]
  4. PROAIR (FLUTICASONE PROPIONATE) [Concomitant]
  5. LOSARTAN [Concomitant]
     Indication: HYPERTENSION
     Dosage: 50 mg, QD
  6. AMLODIPINE [Concomitant]
     Indication: HYPERTENSION
     Dosage: 5 mg, QD
  7. NEXIUM                             /01479302/ [Concomitant]
     Indication: GASTROOESOPHAGEAL REFLUX DISEASE
     Dosage: 40 mg, in the morning
  8. ZANTAC [Concomitant]
     Indication: GASTROOESOPHAGEAL REFLUX DISEASE
  9. TUMS [Concomitant]
     Indication: GASTROOESOPHAGEAL REFLUX DISEASE
  10. GABAPENTIN [Concomitant]
     Indication: NEUROPATHY PERIPHERAL
     Dosage: 300 mg, BID
  11. LIDOCAINE [Concomitant]
     Dosage: 1 tsp at night as needed
  12. CLARITIN [Concomitant]
     Indication: SINUS DISORDER

REACTIONS (14)
  - Cerebrovascular accident [Recovered/Resolved]
  - Lung adenocarcinoma [Unknown]
  - Myocardial ischaemia [Unknown]
  - Fall [Unknown]
  - Joint injury [Unknown]
  - Ecchymosis [Unknown]
  - Productive cough [Unknown]
  - Dizziness [Unknown]
  - Chronic obstructive pulmonary disease [Unknown]
  - Bronchitis [Unknown]
  - Joint stiffness [Unknown]
  - Arthralgia [Unknown]
  - Swelling [Unknown]
  - Incorrect drug administration duration [Unknown]
